FAERS Safety Report 24240131 (Version 1)
Quarter: 2024Q3

REPORT INFORMATION
  Report Type: Spontaneous
  Country: CN (occurrence: CN)
  Receive Date: 20240822
  Receipt Date: 20240822
  Transmission Date: 20241016
  Serious: Yes (Life-Threatening, Other)
  Sender: BAYER
  Company Number: CN-BAYER-2024A119918

PATIENT
  Age: 71 Year
  Sex: Male
  Weight: 65 kg

DRUGS (1)
  1. AVELOX [Suspect]
     Active Substance: MOXIFLOXACIN HYDROCHLORIDE
     Indication: Pneumonia
     Dosage: 0.4 G, QD
     Route: 041
     Dates: start: 20240817, end: 20240817

REACTIONS (8)
  - Anaphylactic reaction [Recovering/Resolving]
  - Chest discomfort [Recovering/Resolving]
  - Tremor [Recovering/Resolving]
  - Tachypnoea [Recovered/Resolved]
  - Dyspnoea [Recovering/Resolving]
  - Cyanosis [Recovered/Resolved]
  - Blood pressure immeasurable [Recovered/Resolved]
  - Oxygen saturation immeasurable [Recovered/Resolved]

NARRATIVE: CASE EVENT DATE: 20240817
